FAERS Safety Report 8127195-0 (Version None)
Quarter: 2012Q1

REPORT INFORMATION
  Report Type: 
  Country: None (occurrence: None)
  Receive Date: 20120210
  Receipt Date: 20120202
  Transmission Date: 20120608
  Serious: Yes (Hospitalization)
  Sender: FDA-Public Use
  Company Number: US-BAYER-2011-032931

PATIENT
  Age: 35 Year
  Sex: Female
  Weight: 77.098 kg

DRUGS (4)
  1. KEPPRA [Concomitant]
     Dosage: 750 MG, QD
  2. PHENERGAN [Concomitant]
     Dosage: 25 MG, UNK
  3. YASMIN [Suspect]
     Indication: CONTRACEPTION
     Dosage: UNK
     Route: 048
     Dates: start: 20051001, end: 20060201
  4. ZONEGRAN [Concomitant]
     Dosage: 100 G, TID

REACTIONS (4)
  - DEEP VEIN THROMBOSIS [None]
  - PELVIC VENOUS THROMBOSIS [None]
  - PULMONARY EMBOLISM [None]
  - PAIN [None]
